FAERS Safety Report 17652904 (Version 2)
Quarter: 2021Q4

REPORT INFORMATION
  Report Type: Spontaneous
  Country: AU (occurrence: AU)
  Receive Date: 20200409
  Receipt Date: 20211029
  Transmission Date: 20220304
  Serious: Yes (Other)
  Sender: FDA-Public Use
  Company Number: NVSC2020AU096121

PATIENT
  Age: 26 Year
  Sex: Female

DRUGS (1)
  1. PREDNISONE [Suspect]
     Active Substance: PREDNISONE
     Indication: Autoimmune disorder
     Dosage: 50 MG, QID
     Route: 065

REACTIONS (3)
  - Renal impairment [Unknown]
  - Premature delivery [Unknown]
  - Maternal exposure during pregnancy [Unknown]
